FAERS Safety Report 4368283-4 (Version None)
Quarter: 2004Q2

REPORT INFORMATION
  Report Type: 
  Country: None (occurrence: None)
  Receive Date: 20040525
  Receipt Date: 20040513
  Transmission Date: 20050107
  Serious: Yes (Other)
  Sender: FDA-Public Use
  Company Number: 2004-00270FE

PATIENT
  Age: 41 Year
  Sex: Male

DRUGS (1)
  1. PENTASA [Suspect]
     Indication: COLITIS ULCERATIVE
     Dosage: 4 G ORALLY; 1 G PER RECTAL
     Route: 048

REACTIONS (4)
  - ANTINUCLEAR ANTIBODY POSITIVE [None]
  - CONNECTIVE TISSUE DISORDER [None]
  - LEUKOCYTOCLASTIC VASCULITIS [None]
  - VIRAL INFECTION [None]
